FAERS Safety Report 16219275 (Version 2)
Quarter: 2020Q2

REPORT INFORMATION
  Report Type: Report from Study
  Country: US (occurrence: US)
  Receive Date: 20190419
  Receipt Date: 20200423
  Transmission Date: 20200713
  Serious: Yes (Other)
  Sender: FDA-Public Use
  Company Number: PHEH2019US016377

PATIENT
  Age: 62 Year
  Sex: Female

DRUGS (1)
  1. COSENTYX [Suspect]
     Active Substance: SECUKINUMAB
     Indication: PSORIASIS
     Dosage: 300 MG, UNK
     Route: 058
     Dates: start: 20190208

REACTIONS (7)
  - Psoriasis [Unknown]
  - Cellulitis [Recovering/Resolving]
  - Staphylococcal infection [Recovering/Resolving]
  - Pharyngitis [Recovering/Resolving]
  - Throat lesion [Unknown]
  - Hidradenitis [Unknown]
  - Oropharyngeal pain [Recovering/Resolving]

NARRATIVE: CASE EVENT DATE: 20190302
